FAERS Safety Report 13384941 (Version 4)
Quarter: 2017Q4

REPORT INFORMATION
  Report Type: Spontaneous
  Country: US (occurrence: US)
  Receive Date: 20170329
  Receipt Date: 20171026
  Transmission Date: 20180320
  Serious: Yes (Other)
  Sender: FDA-Public Use
  Company Number: US-PFIZER INC-2017128621

PATIENT
  Sex: Female

DRUGS (19)
  1. CALCIUM FOLINATE [Suspect]
     Active Substance: LEUCOVORIN CALCIUM
     Indication: PRECURSOR B-LYMPHOBLASTIC LYMPHOMA
     Dosage: UNK 2 CYCLES (MOD 1A, 1B; MOD 2A, 2B; MOD 3A)
     Dates: start: 20160728
  2. CYCLOPHOSPHAMIDE. [Suspect]
     Active Substance: CYCLOPHOSPHAMIDE
     Indication: PRECURSOR B-LYMPHOBLASTIC LYMPHOMA
     Dosage: UNK, 2 CYCLES (MOD 1A, 1B; MOD 2A, 2B; MOD 3A)
     Dates: start: 20160728
  3. CYTARABINE. [Suspect]
     Active Substance: CYTARABINE
     Dosage: UNK, MOD 3B
     Dates: start: 20170104
  4. DEXAMETHASONE. [Suspect]
     Active Substance: DEXAMETHASONE
     Dosage: UNK, MOD 3B
     Dates: start: 20170104
  5. IPHOSPHAMIDE [Suspect]
     Active Substance: IFOSFAMIDE
     Dosage: UNK
     Dates: start: 20170206
  6. CYTARABINE. [Suspect]
     Active Substance: CYTARABINE
     Indication: PRECURSOR B-LYMPHOBLASTIC LYMPHOMA
     Dosage: UNK (12 DOSES)
     Route: 037
  7. METHOTREXATE SODIUM. [Suspect]
     Active Substance: METHOTREXATE SODIUM
     Dosage: UNK 2 CYCLES (MOD 1A, 1B; MOD 2A, 2B; MOD 3A)
     Dates: start: 20160728
  8. CYCLOPHOSPHAMIDE. [Suspect]
     Active Substance: CYCLOPHOSPHAMIDE
     Dosage: UNK, MOD 3B
     Dates: start: 20170104
  9. CALCIUM FOLINATE [Suspect]
     Active Substance: LEUCOVORIN CALCIUM
     Dosage: UNK, MOD 3B
     Dates: start: 20170104
  10. DOXORUBICIN HCL [Suspect]
     Active Substance: DOXORUBICIN HYDROCHLORIDE
     Dosage: UNK, MOD 3B
     Dates: start: 20170104
  11. ETOPOSIDE. [Suspect]
     Active Substance: ETOPOSIDE
     Dosage: UNK
     Dates: start: 20170206
  12. CYTARABINE. [Suspect]
     Active Substance: CYTARABINE
     Dosage: UNK 2 CYCLES (MOD 1A, 1B; MOD 2A, 2B; MOD 3A)
     Dates: start: 20160728
  13. BLINATUMOMAB [Suspect]
     Active Substance: BLINATUMOMAB
     Indication: ACUTE LYMPHOCYTIC LEUKAEMIA
     Dosage: UNK, CYCLIC
     Dates: start: 20170224
  14. METHOTREXATE SODIUM. [Suspect]
     Active Substance: METHOTREXATE SODIUM
     Indication: PRECURSOR B-LYMPHOBLASTIC LYMPHOMA
     Dosage: UNK (12 DOSES)
     Route: 037
  15. VINCRISTINE SULFATE. [Suspect]
     Active Substance: VINCRISTINE SULFATE
     Indication: PRECURSOR B-LYMPHOBLASTIC LYMPHOMA
     Dosage: UNK 2 CYCLES (MOD 1A, 1B; MOD 2A, 2B; MOD 3A)
     Dates: start: 20160728
  16. VINCRISTINE SULFATE. [Suspect]
     Active Substance: VINCRISTINE SULFATE
     Dosage: UNK, MOD 3B
     Dates: start: 20170104
  17. DEXAMETHASONE. [Suspect]
     Active Substance: DEXAMETHASONE
     Indication: PRECURSOR B-LYMPHOBLASTIC LYMPHOMA
     Dosage: UNK 2 CYCLES (MOD 1A, 1B; MOD 2A, 2B; MOD 3A)
     Dates: start: 20160728
  18. METHOTREXATE SODIUM. [Suspect]
     Active Substance: METHOTREXATE SODIUM
     Dosage: UNK, MOD 3B
     Dates: start: 20170104
  19. DOXORUBICIN HCL [Suspect]
     Active Substance: DOXORUBICIN HYDROCHLORIDE
     Indication: PRECURSOR B-LYMPHOBLASTIC LYMPHOMA
     Dosage: UNK 2 CYCLES (MOD 1A, 1B; MOD 2A, 2B; MOD 3A)
     Dates: start: 20160728

REACTIONS (2)
  - Thrombocytopenia [Unknown]
  - Neoplasm progression [Unknown]

NARRATIVE: CASE EVENT DATE: 2017
